FAERS Safety Report 24621516 (Version 2)
Quarter: 2024Q4

REPORT INFORMATION
  Report Type: Spontaneous
  Country: FR (occurrence: FR)
  Receive Date: 20241114
  Receipt Date: 20241205
  Transmission Date: 20250115
  Serious: Yes (Hospitalization, Other)
  Sender: MERCK
  Company Number: FR-009507513-2411FRA004685

PATIENT
  Age: 58 Year
  Sex: Female
  Weight: 66.5 kg

DRUGS (3)
  1. KEYTRUDA [Suspect]
     Active Substance: PEMBROLIZUMAB
     Indication: Triple negative breast cancer
     Dosage: 200 MILLIGRAM, Q3W
     Route: 042
     Dates: start: 20240618, end: 20240730
  2. PACLITAXEL [Suspect]
     Active Substance: PACLITAXEL
     Indication: Triple negative breast cancer
     Dosage: 80 MILLIGRAM/SQ. METER PER TRETAMENT
     Route: 042
     Dates: start: 20240618, end: 20240806
  3. CARBOPLATIN [Suspect]
     Active Substance: CARBOPLATIN
     Indication: Triple negative breast cancer
     Dosage: 1.50 ARE UNDER THE CURVE (AUC)/TREATMENT
     Route: 042
     Dates: start: 20240618, end: 20240730

REACTIONS (3)
  - Facial paralysis [Recovering/Resolving]
  - Ataxia [Recovering/Resolving]
  - Sensorimotor disorder [Recovering/Resolving]

NARRATIVE: CASE EVENT DATE: 20240819
